FAERS Safety Report 20842521 (Version 1)
Quarter: 2022Q2

REPORT INFORMATION
  Report Type: Spontaneous
  Country: LB (occurrence: LB)
  Receive Date: 20220518
  Receipt Date: 20220518
  Transmission Date: 20220721
  Serious: Yes (Death, Hospitalization, Other)
  Sender: FDA-Public Use
  Company Number: LE-ALVOGEN-2022-ALVOGEN-120344

PATIENT
  Age: 24 Year
  Sex: Male

DRUGS (4)
  1. DOXORUBICIN [Suspect]
     Active Substance: DOXORUBICIN
     Indication: Kaposi^s sarcoma
  2. DOLUTEGRAVIR [Suspect]
     Active Substance: DOLUTEGRAVIR
     Indication: HIV infection
  3. LAMIVUDINE [Suspect]
     Active Substance: LAMIVUDINE
     Indication: HIV infection
  4. TENOFOVIR [Suspect]
     Active Substance: TENOFOVIR
     Indication: HIV infection

REACTIONS (8)
  - Pancytopenia [Fatal]
  - Pulmonary oedema [Fatal]
  - Pleural effusion [Fatal]
  - Renal failure [Fatal]
  - Anaemia [Fatal]
  - Coagulopathy [Fatal]
  - Haemoglobin decreased [Fatal]
  - Condition aggravated [Fatal]
